FAERS Safety Report 7073700-5 (Version None)
Quarter: 2010Q4

REPORT INFORMATION
  Report Type: 
  Country: None (occurrence: None)
  Receive Date: 20101029
  Receipt Date: 20100802
  Transmission Date: 20110411
  Serious: No
  Sender: FDA-Public Use
  Company Number: A0873470A

PATIENT
  Age: 51 Year
  Sex: Female

DRUGS (8)
  1. ADVAIR DISKUS 100/50 [Suspect]
     Indication: CHRONIC OBSTRUCTIVE PULMONARY DISEASE
     Dosage: 1PUFF TWICE PER DAY
     Route: 055
  2. COUMADIN [Concomitant]
  3. PREDNISONE [Concomitant]
  4. METHOTREXATE [Concomitant]
  5. COREG [Concomitant]
  6. WELLBUTRIN [Concomitant]
  7. KLONOPIN [Concomitant]
  8. RISPERDAL [Concomitant]

REACTIONS (2)
  - BONE PAIN [None]
  - MYALGIA [None]
